FAERS Safety Report 26091081 (Version 3)
Quarter: 2025Q4

REPORT INFORMATION
  Report Type: Spontaneous
  Country: EU (occurrence: EU)
  Receive Date: 20251126
  Receipt Date: 20251210
  Transmission Date: 20260118
  Serious: Yes (Other)
  Sender: TORRENT PHARMA INC.
  Company Number: None

PATIENT
  Age: 29 Year
  Sex: Female
  Weight: 70 kg

DRUGS (13)
  1. IBUPROFEN [Suspect]
     Active Substance: IBUPROFEN
     Indication: Pain
     Dosage: AS NEEDED
     Route: 048
     Dates: start: 20250804
  2. LACTULOSE [Suspect]
     Active Substance: LACTULOSE
     Indication: Constipation
     Dosage: 10 ML PER DOSE INTAKE
     Route: 048
     Dates: start: 20250923
  3. SERTRALINE [Suspect]
     Active Substance: SERTRALINE HYDROCHLORIDE
     Indication: Product used for unknown indication
     Dosage: DAILY
     Route: 065
  4. LORAZEPAM [Suspect]
     Active Substance: LORAZEPAM
     Indication: Restlessness
     Dosage: AS NEEDED, 1,0MG
     Route: 048
     Dates: start: 20250816
  5. POLYETHYLENE GLYCOLS [Suspect]
     Active Substance: POLYETHYLENE GLYCOLS
     Indication: Product used for unknown indication
     Dosage: DAILY, 1 SACHET EACH IN THE MORNING/AT NOON/IN ?THE EVENING
     Route: 048
     Dates: start: 20250922
  6. PROMETHAZINE [Suspect]
     Active Substance: PROMETHAZINE HYDROCHLORIDE
     Indication: Restlessness
     Dosage: AS NEEDED, 25MG,
     Route: 048
     Dates: start: 20250608
  7. AMISULPRIDE [Suspect]
     Active Substance: AMISULPRIDE
     Indication: Product used for unknown indication
     Dosage: DAILY
     Route: 065
  8. BIPERIDEN [Suspect]
     Active Substance: BIPERIDEN
     Indication: Extrapyramidal disorder
     Dosage: AS NEEDED
     Route: 065
  9. BIPERIDEN [Suspect]
     Active Substance: BIPERIDEN
     Indication: Product used for unknown indication
     Dosage: DAILY, PROLONG RELEASE
     Route: 065
  10. CLOZAPINE [Suspect]
     Active Substance: CLOZAPINE
     Indication: Product used for unknown indication
     Dosage: DAILY
     Route: 065
  11. DIAZEPAM [Suspect]
     Active Substance: DIAZEPAM
     Indication: Restlessness
     Dosage: AS NEEDED, AS NEEDED ?5MG PER DOSE INTAKE
     Route: 048
     Dates: start: 20250610
  12. HALOPERIDOL [Suspect]
     Active Substance: HALOPERIDOL
     Indication: Restlessness
     Dosage: AS NEEDED
     Route: 065
  13. LACTULOSE [Suspect]
     Active Substance: LACTULOSE
     Indication: Product used for unknown indication
     Dosage: DAILY, FIRST ADMINISTRATION PLANNED ON 28-OCT-2025 ?10-10-10ML
     Route: 048
     Dates: start: 20251028

REACTIONS (41)
  - Seizure [Unknown]
  - Fear of death [Unknown]
  - Foaming at mouth [Unknown]
  - Exophthalmos [Unknown]
  - Tremor [Unknown]
  - Human bite [Unknown]
  - Amnesia [Unknown]
  - Head discomfort [Unknown]
  - Syncope [Unknown]
  - Screaming [Unknown]
  - Angina pectoris [Unknown]
  - Circulatory collapse [Unknown]
  - Speech disorder [Unknown]
  - Confusional state [Unknown]
  - Anxiety [Unknown]
  - Headache [Unknown]
  - Dizziness [Unknown]
  - Nausea [Unknown]
  - Constipation [Unknown]
  - Abdominal discomfort [Unknown]
  - Pelvic pain [Unknown]
  - Pyrexia [Unknown]
  - Weight increased [Unknown]
  - Alopecia [Unknown]
  - Menstruation delayed [Unknown]
  - Uterine pain [Unknown]
  - Contraindicated product administered [Unknown]
  - Circumstance or information capable of leading to medication error [Unknown]
  - Labelled drug-drug interaction issue [Unknown]
  - Muscle twitching [Unknown]
  - Motor dysfunction [Unknown]
  - Dysphemia [Unknown]
  - Memory impairment [Unknown]
  - Posture abnormal [Unknown]
  - Stress [Unknown]
  - Abdominal pain [Unknown]
  - Amenorrhoea [Unknown]
  - Epilepsy [Unknown]
  - Tongue biting [Unknown]
  - Loss of consciousness [Unknown]
  - Hyperacusis [Unknown]

NARRATIVE: CASE EVENT DATE: 20250101
